FAERS Safety Report 7546020-X (Version None)
Quarter: 2011Q2

REPORT INFORMATION
  Report Type: 
  Country: None (occurrence: None)
  Receive Date: 20110614
  Receipt Date: 20110526
  Transmission Date: 20111010
  Serious: No
  Sender: FDA-Public Use
  Company Number: US-B.I. PHARMACEUTICALS,INC./RIDGEFIELD-2011-BP-14083BP

PATIENT
  Sex: Female

DRUGS (25)
  1. LOMOTIL [Concomitant]
     Indication: DIARRHOEA
  2. ANTIVERT [Concomitant]
     Indication: VERTIGO
  3. NORCO [Concomitant]
     Indication: BACK PAIN
     Dosage: 20 MG
     Route: 048
  4. PRADAXA [Suspect]
     Route: 048
  5. LOMOTIL [Concomitant]
     Indication: GASTROOESOPHAGEAL REFLUX DISEASE
     Route: 048
  6. ADVAIR DISKUS 100/50 [Concomitant]
     Indication: ASTHMA
     Route: 055
  7. MICARDIS [Suspect]
     Indication: HYPERTENSION
     Dosage: 40 MG
     Route: 048
     Dates: start: 20080101
  8. ZOFRAN [Concomitant]
     Indication: GASTROOESOPHAGEAL REFLUX DISEASE
     Dosage: 4 MG
     Route: 048
  9. ZOFRAN [Concomitant]
     Indication: NAUSEA
  10. XANAX [Concomitant]
     Indication: ANXIETY
     Dosage: 2 MG
     Route: 048
  11. ANTIVERT [Concomitant]
     Indication: GASTROOESOPHAGEAL REFLUX DISEASE
     Dosage: 25 MG
     Route: 048
  12. PRADAXA [Suspect]
     Indication: ATRIAL FIBRILLATION
     Dosage: 300 MG
     Route: 048
     Dates: start: 20110501, end: 20110508
  13. LASIX [Concomitant]
     Indication: FLUID RETENTION
     Dosage: 40 MG
     Route: 048
  14. LIDODERM [Concomitant]
     Indication: BACK PAIN
     Route: 061
  15. OPANA [Concomitant]
     Indication: BACK PAIN
     Dosage: 40 MG
     Route: 048
  16. ATARAX [Concomitant]
     Indication: HYPERSENSITIVITY
     Dosage: 25 MG
     Route: 048
  17. PLETAL [Concomitant]
     Indication: BACK PAIN
     Dosage: 100 MG
     Route: 048
  18. LEVOTHYROXINE SODIUM [Concomitant]
     Indication: HYPOTHYROIDISM
     Dosage: 75 MCG
     Route: 048
  19. ZEGERID [Concomitant]
     Indication: GASTROOESOPHAGEAL REFLUX DISEASE
     Dosage: 40 MG
     Route: 048
  20. ATARAX [Concomitant]
     Indication: PRURITUS
  21. XOPENEX [Concomitant]
     Indication: ASTHMA
     Dosage: 1.25 MG
     Route: 055
  22. SOMA [Concomitant]
     Indication: BACK PAIN
     Dosage: 350 MG
     Route: 048
  23. PLETAL [Concomitant]
     Indication: LIMB INJURY
  24. CRESTOR [Concomitant]
     Indication: BLOOD CHOLESTEROL INCREASED
     Dosage: 10 MG
     Route: 048
  25. SYMBICORT [Concomitant]
     Indication: ASTHMA
     Route: 055

REACTIONS (7)
  - CONTUSION [None]
  - DISORIENTATION [None]
  - DIZZINESS [None]
  - PALPITATIONS [None]
  - DYSPNOEA [None]
  - DYSPHAGIA [None]
  - NAUSEA [None]
